FAERS Safety Report 10129271 (Version 1)
Quarter: 2014Q2

REPORT INFORMATION
  Report Type: Report from Study
  Country: US (occurrence: US)
  Receive Date: 20140428
  Receipt Date: 20140428
  Transmission Date: 20141212
  Serious: No
  Sender: FDA-Public Use
  Company Number: US-ABBVIE-14P-163-1204046-00

PATIENT
  Sex: Male
  Weight: 102.15 kg

DRUGS (6)
  1. ANDROGEL [Suspect]
     Indication: PRODUCT USED FOR UNKNOWN INDICATION
     Dosage: 1 PUMP TO EACH SHOULDER 4 TIMES A DAY
     Route: 061
     Dates: start: 201307, end: 201311
  2. ANDROGEL [Suspect]
     Dosage: 1 PUMP TO EACH SHOULDER 6 TIMES A DAY
     Route: 061
     Dates: start: 201311
  3. GLYBURIDE [Concomitant]
     Indication: PRODUCT USED FOR UNKNOWN INDICATION
  4. CRESTOR [Concomitant]
     Indication: PRODUCT USED FOR UNKNOWN INDICATION
  5. CENTRUM [Concomitant]
     Indication: PRODUCT USED FOR UNKNOWN INDICATION
  6. ASPIRIN [Concomitant]
     Indication: PRODUCT USED FOR UNKNOWN INDICATION

REACTIONS (5)
  - Asthenia [Not Recovered/Not Resolved]
  - Loss of libido [Not Recovered/Not Resolved]
  - Asthenia [Recovered/Resolved]
  - Loss of libido [Recovered/Resolved]
  - Incorrect dose administered [Not Recovered/Not Resolved]
